FAERS Safety Report 4934591-9 (Version None)
Quarter: 2006Q1

REPORT INFORMATION
  Report Type: 
  Country: None (occurrence: None)
  Receive Date: 20060307
  Receipt Date: 20060203
  Transmission Date: 20060701
  Serious: Yes (Hospitalization)
  Sender: FDA-Public Use
  Company Number: FR-MERCK-0603FRA00009

PATIENT
  Age: 39 Year
  Sex: Male

DRUGS (15)
  1. CRIXIVAN [Suspect]
     Indication: HIV INFECTION
     Route: 048
     Dates: start: 20020201, end: 20030401
  2. CRIXIVAN [Suspect]
     Route: 048
     Dates: start: 20030401, end: 20030701
  3. CRIXIVAN [Suspect]
     Route: 048
     Dates: start: 20030701, end: 20030901
  4. CRIXIVAN [Suspect]
     Route: 048
     Dates: start: 20030901
  5. STAVUDINE [Concomitant]
     Indication: HIV INFECTION
     Route: 048
     Dates: start: 20020201, end: 20030401
  6. DIDANOSINE [Concomitant]
     Indication: HIV INFECTION
     Route: 048
     Dates: start: 20020201, end: 20030401
  7. PYRIMETHAMINE [Concomitant]
     Indication: PROPHYLAXIS
     Route: 048
  8. CLINDAMYCIN [Concomitant]
     Indication: INFECTION PROPHYLAXIS
     Route: 048
  9. PENTAMIDINE ISETIONATE [Concomitant]
     Indication: INFECTION PROPHYLAXIS
     Route: 061
  10. ABACAVIR SULFATE [Concomitant]
     Indication: HIV INFECTION
     Route: 048
     Dates: start: 20030701
  11. TENOFOVIR [Concomitant]
     Indication: HIV INFECTION
     Route: 048
     Dates: start: 20030701
  12. TRACLEER [Suspect]
     Indication: PULMONARY HYPERTENSION
     Route: 048
     Dates: start: 20030601, end: 20030701
  13. TRACLEER [Suspect]
     Route: 048
     Dates: start: 20030701
  14. FOLINIC ACID [Concomitant]
     Route: 048
     Dates: start: 20030601
  15. FUROSEMIDE [Concomitant]
     Indication: PULMONARY HYPERTENSION
     Route: 048
     Dates: start: 20030601, end: 20031001

REACTIONS (5)
  - DRUG INTERACTION [None]
  - DRUG LEVEL DECREASED [None]
  - LACTIC ACIDOSIS [None]
  - PANCYTOPENIA [None]
  - PULMONARY HYPERTENSION [None]
